FAERS Safety Report 24416602 (Version 1)
Quarter: 2024Q4

REPORT INFORMATION
  Report Type: Spontaneous
  Country: US (occurrence: None)
  Receive Date: 20241007
  Receipt Date: 20241007
  Transmission Date: 20250114
  Serious: Yes (Hospitalization)
  Sender: Public
  Company Number: None

PATIENT
  Age: 22 Year
  Sex: Female
  Weight: 68.04 kg

DRUGS (5)
  1. PARAGARD T 380A [Suspect]
     Active Substance: COPPER
     Dates: start: 20240829, end: 20241007
  2. NORCO [Concomitant]
     Active Substance: ACETAMINOPHEN\HYDROCODONE BITARTRATE
  3. METRONIDAZOLE [Concomitant]
     Active Substance: METRONIDAZOLE
  4. DOXYCYCLINE [Concomitant]
     Active Substance: DOXYCYCLINE
  5. NAPROXEN SODIUM [Concomitant]
     Active Substance: NAPROXEN SODIUM

REACTIONS (1)
  - Pelvic inflammatory disease [None]

NARRATIVE: CASE EVENT DATE: 20241006
